FAERS Safety Report 6421722-7 (Version None)
Quarter: 2009Q4

REPORT INFORMATION
  Report Type: 
  Country: None (occurrence: None)
  Receive Date: 20091030
  Receipt Date: 20091020
  Transmission Date: 20100525
  Serious: Yes (Other)
  Sender: FDA-Public Use
  Company Number: US-ELI_LILLY_AND_COMPANY-US200908006545

PATIENT
  Sex: Female

DRUGS (5)
  1. FORTEO [Suspect]
     Indication: OSTEOPOROSIS
     Dosage: 20 UG, DAILY (1/D)
     Dates: start: 20071201
  2. MENOSTAR [Concomitant]
     Indication: OSTEOPOROSIS
  3. CALCIUM [Concomitant]
  4. VITAMIN D [Concomitant]
  5. PREMARIN [Concomitant]

REACTIONS (3)
  - ARTHROPATHY [None]
  - BLOOD CALCIUM INCREASED [None]
  - OSTEONECROSIS [None]
